FAERS Safety Report 8054159 (Version 3)
Quarter: 2013Q1

REPORT INFORMATION
  Report Type: Spontaneous
  Country: US (occurrence: None)
  Receive Date: 20110712
  Receipt Date: 20130116
  Transmission Date: 20140127
  Serious: Yes (Hospitalization)
  Sender: FDA-Public Use
  Company Number: 2011AP001345

PATIENT
  Age: 48 Year
  Sex: Female

DRUGS (5)
  1. LITHIUM CARBONATE [Suspect]
  2. PARACETAMOL [Concomitant]
  3. SALICYLATES NOS [Concomitant]
  4. PHENYTOIN SODIUM [Concomitant]
  5. VALPROIC ACID [Concomitant]

REACTIONS (13)
  - MENTAL STATUS CHANGES [None]
  - HYPERREFLEXIA [None]
  - TREMOR [None]
  - MUSCLE RIGIDITY [None]
  - MYOCLONUS [None]
  - TOXICITY TO VARIOUS AGENTS [None]
  - TACHYCARDIA [None]
  - HYPOKINESIA [None]
  - PROTEIN URINE [None]
  - BLOOD CREATINE PHOSPHOKINASE INCREASED [None]
  - NEUTROPHIL COUNT INCREASED [None]
  - SELF-MEDICATION [None]
  - NEUROTOXICITY [None]
